FAERS Safety Report 8410089 (Version 4)
Quarter: 2012Q4

REPORT INFORMATION
  Report Type: Report from Study
  Country: CA (occurrence: CA)
  Receive Date: 20120217
  Receipt Date: 20121231
  Transmission Date: 20130627
  Serious: Yes (Disabling)
  Sender: FDA-Public Use
  Company Number: CA-BRISTOL-MYERS SQUIBB COMPANY-16395188

PATIENT
  Age: 53 Year
  Sex: Male

DRUGS (6)
  1. CETUXIMAB [Suspect]
     Indication: HEAD AND NECK CANCER
     Dosage: Last dose on 01Feb2012 being the Second infusion
     Route: 065
     Dates: start: 20120125, end: 20120206
  2. CISPLATIN [Suspect]
     Indication: HEAD AND NECK CANCER
     Route: 065
     Dates: start: 20120125, end: 20120206
  3. 5-FLUOROURACIL [Suspect]
     Indication: HEAD AND NECK CANCER
     Route: 065
     Dates: start: 20120125, end: 20120206
  4. STEMETIL [Concomitant]
     Dates: start: 20120130
  5. NYSTATIN [Concomitant]
     Dates: start: 20120206
  6. TYLENOL [Concomitant]
     Dates: start: 20120125

REACTIONS (1)
  - Ischaemic cerebral infarction [Recovered/Resolved]
